FAERS Safety Report 7893378-8 (Version None)
Quarter: 2011Q4

REPORT INFORMATION
  Report Type: 
  Country: None (occurrence: None)
  Receive Date: 20111104
  Receipt Date: 20111102
  Transmission Date: 20120403
  Serious: Yes (Other)
  Sender: FDA-Public Use
  Company Number: US-ROCHE-791168

PATIENT
  Sex: Male
  Weight: 77.18 kg

DRUGS (4)
  1. ACCUTANE [Suspect]
     Indication: ACNE CYSTIC
     Route: 065
     Dates: start: 20000616, end: 20000731
  2. ACCUTANE [Suspect]
     Dates: start: 20000901, end: 20001113
  3. ACCUTANE [Suspect]
     Dates: start: 20000822, end: 20000901
  4. ACCUTANE [Suspect]
     Dosage: 80 MG IN MORNING AND 40 MG IN EVENING
     Dates: start: 20000801, end: 20000814

REACTIONS (7)
  - STRESS [None]
  - IRRITABLE BOWEL SYNDROME [None]
  - INFLAMMATORY BOWEL DISEASE [None]
  - FOOD POISONING [None]
  - ANXIETY [None]
  - LIP DRY [None]
  - COLITIS ULCERATIVE [None]
